FAERS Safety Report 14512806 (Version 1)
Quarter: 2018Q1

REPORT INFORMATION
  Report Type: Spontaneous
  Country: US (occurrence: US)
  Receive Date: 20180209
  Receipt Date: 20180209
  Transmission Date: 20180509
  Serious: No
  Sender: FDA-Public Use
  Company Number: US-ALLERGAN-1709569US

PATIENT
  Age: 57 Year
  Sex: Male
  Weight: 83.9 kg

DRUGS (2)
  1. OMEGA 3 FISH OILS [Concomitant]
     Active Substance: OMEGA-3 FATTY ACIDS
     Indication: PRODUCT USED FOR UNKNOWN INDICATION
     Dosage: 2 DF, QD
     Route: 048
  2. RESTASIS [Suspect]
     Active Substance: CYCLOSPORINE
     Indication: DRY EYE
     Dosage: 2 GTT, BID
     Route: 047
     Dates: start: 2015

REACTIONS (7)
  - Eye irritation [Not Recovered/Not Resolved]
  - Eye pain [Not Recovered/Not Resolved]
  - Eye pain [Recovered/Resolved]
  - Eye discharge [Not Recovered/Not Resolved]
  - Eye pruritus [Not Recovered/Not Resolved]
  - Eye pruritus [Recovered/Resolved]
  - Eye irritation [Recovered/Resolved]

NARRATIVE: CASE EVENT DATE: 201703
